FAERS Safety Report 5627376-1 (Version None)
Quarter: 2008Q1

REPORT INFORMATION
  Report Type: 
  Country: None (occurrence: None)
  Receive Date: 20080215
  Receipt Date: 20080207
  Transmission Date: 20080703
  Serious: Yes (Hospitalization, Other)
  Sender: FDA-Public Use
  Company Number: PT-BAYER-200812832GPV

PATIENT
  Age: 54 Year
  Sex: Female

DRUGS (1)
  1. ULTRAVIST 300 [Suspect]
     Indication: COMPUTERISED TOMOGRAM
     Route: 042

REACTIONS (8)
  - ANAPHYLACTOID REACTION [None]
  - CHILLS [None]
  - HYPOTENSION [None]
  - PERIORBITAL OEDEMA [None]
  - PRURITUS [None]
  - RESPIRATORY DISTRESS [None]
  - TACHYCARDIA [None]
  - TONGUE OEDEMA [None]
